FAERS Safety Report 11824664 (Version 2)
Quarter: 2016Q1

REPORT INFORMATION
  Report Type: Spontaneous
  Country: JP (occurrence: JP)
  Receive Date: 20151210
  Receipt Date: 20160105
  Transmission Date: 20160525
  Serious: Yes (Death, Other)
  Sender: FDA-Public Use
  Company Number: JP-GILEAD-2015-0186966

PATIENT
  Age: 82 Year
  Sex: Male
  Weight: 57.6 kg

DRUGS (2)
  1. SOVALDI [Suspect]
     Active Substance: SOFOSBUVIR
     Indication: HEPATIC CIRRHOSIS
     Dosage: 400 MG, UNK
     Route: 048
     Dates: start: 20150912, end: 20151111
  2. REBETOL [Suspect]
     Active Substance: RIBAVIRIN
     Indication: HEPATIC CIRRHOSIS
     Dosage: 600 MG, UNK
     Route: 048
     Dates: start: 20150912, end: 20151111

REACTIONS (2)
  - Cardio-respiratory arrest [Fatal]
  - Anaemia [Unknown]

NARRATIVE: CASE EVENT DATE: 20151112
